FAERS Safety Report 6258295-8 (Version None)
Quarter: 2009Q3

REPORT INFORMATION
  Report Type: 
  Country: None (occurrence: None)
  Receive Date: 20090707
  Receipt Date: 20090629
  Transmission Date: 20100115
  Serious: Yes (Hospitalization)
  Sender: FDA-Public Use
  Company Number: FR-B.I. PHARMACEUTICALS,INC./RIDGEFIELD-2009-FF-00469FF

PATIENT
  Sex: Female

DRUGS (16)
  1. SPIRIVA [Suspect]
     Dosage: 18 MCG
     Route: 055
  2. COLCHIMAX [Concomitant]
     Indication: GOUT
     Route: 048
     Dates: start: 20081031, end: 20081031
  3. COLCHIMAX [Concomitant]
     Route: 048
     Dates: start: 20081101, end: 20081101
  4. COLCHIMAX [Concomitant]
     Route: 048
     Dates: start: 20081102, end: 20081102
  5. TAHOR [Concomitant]
     Dosage: 10 MG
     Route: 048
  6. LASIX [Concomitant]
     Dosage: 60 MG
     Route: 048
  7. LASIX [Concomitant]
     Dosage: 40 MG
     Route: 048
     Dates: start: 20081106
  8. CARDENSIEL [Concomitant]
     Dosage: 5 MG
     Route: 048
  9. STABLON [Concomitant]
     Route: 048
  10. ZOLPIDEM TARTRATE [Concomitant]
     Route: 048
  11. TRIATEC [Concomitant]
     Dosage: 10 MG
     Route: 048
  12. TRIATEC [Concomitant]
     Dosage: 5 MG
     Route: 048
     Dates: start: 20081107
  13. PULMICORT-100 [Concomitant]
     Route: 055
  14. COUMADIN [Concomitant]
     Dosage: 4 MG
     Route: 048
     Dates: end: 20081106
  15. COUMADIN [Concomitant]
     Dosage: 2 MG
     Route: 048
     Dates: start: 20081112
  16. DIFFU K [Concomitant]
     Route: 048
     Dates: end: 20081114

REACTIONS (5)
  - DEHYDRATION [None]
  - DIARRHOEA [None]
  - FOOD INTOLERANCE [None]
  - NAUSEA [None]
  - VOMITING [None]
